FAERS Safety Report 9603397 (Version 1)
Quarter: 2013Q4

REPORT INFORMATION
  Report Type: Spontaneous
  Country: US (occurrence: US)
  Receive Date: 20131007
  Receipt Date: 20131007
  Transmission Date: 20140711
  Serious: Yes (Other)
  Sender: FDA-Public Use
  Company Number: US-TARO-2013P1019547

PATIENT
  Age: 65 Year
  Sex: Female
  Weight: 78.93 kg

DRUGS (1)
  1. CLOBETASOL PROPIONATE OINTMENT USP 0.05% [Suspect]
     Indication: PSORIASIS
     Route: 061
     Dates: start: 1993

REACTIONS (7)
  - Coeliac disease [Not Recovered/Not Resolved]
  - Anaemia [Unknown]
  - Hypertension [Unknown]
  - Dysphagia [Not Recovered/Not Resolved]
  - Oesophageal ulcer [Unknown]
  - Gastritis erosive [Unknown]
  - Erosive oesophagitis [Unknown]
